FAERS Safety Report 25253108 (Version 1)
Quarter: 2025Q2

REPORT INFORMATION
  Report Type: Report from Study
  Country: AU (occurrence: AU)
  Receive Date: 20250430
  Receipt Date: 20250430
  Transmission Date: 20250717
  Serious: Yes (Other)
  Sender: ABBVIE
  Company Number: AU-ABBVIE-6250073

PATIENT
  Age: 84 Year
  Sex: Male

DRUGS (2)
  1. CARBIDOPA\LEVODOPA [Suspect]
     Active Substance: CARBIDOPA\LEVODOPA
     Indication: Parkinson^s disease
     Route: 050
     Dates: start: 20241008
  2. CARBIDOPA\LEVODOPA [Suspect]
     Active Substance: CARBIDOPA\LEVODOPA

REACTIONS (7)
  - Hip arthroplasty [Unknown]
  - Faecaloma [Unknown]
  - Inguinal hernia [Unknown]
  - Osteoarthritis [Unknown]
  - Scoliosis [Unknown]
  - Intervertebral disc degeneration [Unknown]
  - Extraskeletal ossification [Unknown]
